FAERS Safety Report 12502007 (Version 2)
Quarter: 2016Q3

REPORT INFORMATION
  Report Type: Spontaneous
  Country: IT (occurrence: IT)
  Receive Date: 20160627
  Receipt Date: 20160714
  Transmission Date: 20161109
  Serious: Yes (Other)
  Sender: FDA-Public Use
  Company Number: IT-TEVA-670001ACC

PATIENT
  Age: 39 Year
  Sex: Male

DRUGS (1)
  1. OLANZAPINA TEVA - TEVA B.V. [Suspect]
     Active Substance: OLANZAPINE
     Indication: PSYCHOTIC DISORDER
     Dosage: 15 MILLIGRAM DAILY;
     Route: 048
     Dates: start: 201510, end: 201602

REACTIONS (4)
  - Schizoaffective disorder [Unknown]
  - Hypertriglyceridaemia [Unknown]
  - Anticholinergic syndrome [Unknown]
  - Hypercholesterolaemia [Unknown]

NARRATIVE: CASE EVENT DATE: 20160301
